FAERS Safety Report 12956913 (Version 1)
Quarter: 2016Q4

REPORT INFORMATION
  Report Type: Spontaneous
  Country: GB (occurrence: GB)
  Receive Date: 20161118
  Receipt Date: 20161118
  Transmission Date: 20170207
  Serious: Yes (Other)
  Sender: FDA-Public Use
  Company Number: GB-BAYER-2016-219579

PATIENT
  Age: 79 Year
  Sex: Female

DRUGS (1)
  1. ADEMPAS [Suspect]
     Active Substance: RIOCIGUAT
     Dosage: UNK
     Dates: end: 20161019

REACTIONS (5)
  - Syncope [None]
  - Feeling abnormal [None]
  - Incorrect product storage [None]
  - Drug dispensing error [None]
  - Therapy cessation [None]

NARRATIVE: CASE EVENT DATE: 20161104
